FAERS Safety Report 7971819-5 (Version None)
Quarter: 2011Q4

REPORT INFORMATION
  Report Type: 
  Country: None (occurrence: None)
  Receive Date: 20111212
  Receipt Date: 20111129
  Transmission Date: 20120403
  Serious: Yes (Other)
  Sender: FDA-Public Use
  Company Number: US-ELI_LILLY_AND_COMPANY-US201111000658

PATIENT
  Sex: Female
  Weight: 56.689 kg

DRUGS (18)
  1. FLEXERIL [Concomitant]
  2. ASCORBIC ACID [Concomitant]
  3. DEMADEX [Concomitant]
  4. CENTRUM SILVER [Concomitant]
  5. CALCIUM [Concomitant]
  6. IRON [Concomitant]
  7. DEMEROL [Concomitant]
  8. LOPRESSOR [Concomitant]
  9. VITAMIN E                            /001105/ [Concomitant]
  10. FORTEO [Suspect]
     Dosage: 20 UG, QD
     Route: 065
  11. LEVOXYL [Concomitant]
  12. MELOXICAM [Concomitant]
  13. FORTEO [Suspect]
     Indication: OSTEOPOROSIS
     Dosage: 20 UG, QD
     Dates: start: 20110725
  14. VALIUM [Concomitant]
  15. FOLIC ACID [Concomitant]
  16. VITAMIN B NOS [Concomitant]
  17. VITAMIN D [Concomitant]
  18. VITAMIN D [Concomitant]

REACTIONS (7)
  - CEREBROVASCULAR ACCIDENT [None]
  - ASTHENIA [None]
  - HEADACHE [None]
  - TREMOR [None]
  - FATIGUE [None]
  - SPEECH DISORDER [None]
  - CONVULSION [None]
